FAERS Safety Report 19040382 (Version 14)
Quarter: 2023Q1

REPORT INFORMATION
  Report Type: Spontaneous
  Country: CA (occurrence: CA)
  Receive Date: 20210323
  Receipt Date: 20230106
  Transmission Date: 20230418
  Serious: Yes (Other)
  Sender: FDA-Public Use
  Company Number: CA-CELLTRION INC.-2021CA003652

PATIENT

DRUGS (25)
  1. INFLECTRA [Suspect]
     Active Substance: INFLIXIMAB-DYYB
     Indication: Crohn^s disease
     Dosage: 10 MG/KG, IN HOSPITAL
     Route: 042
     Dates: start: 20210104
  2. INFLECTRA [Suspect]
     Active Substance: INFLIXIMAB-DYYB
     Dosage: 10 MG/KG, IN HOSPITAL
     Route: 042
     Dates: start: 20210220
  3. INFLECTRA [Suspect]
     Active Substance: INFLIXIMAB-DYYB
     Dosage: 10 MG/KG AT 0, 2, 6, THEN EVERY 8 WEEKS
     Route: 042
     Dates: start: 20210220
  4. INFLECTRA [Suspect]
     Active Substance: INFLIXIMAB-DYYB
     Dosage: 10 MG/KG, WEEK 6, THEN EVERY 8 WEEKS
     Route: 042
     Dates: start: 20210220
  5. INFLECTRA [Suspect]
     Active Substance: INFLIXIMAB-DYYB
     Dosage: 10 MG/KG, WEEK 0, 2,6 THEN Q 8WEEKS1ST 2 DOSES IN HOSPITAL
     Route: 042
     Dates: start: 20210220, end: 20210520
  6. INFLECTRA [Suspect]
     Active Substance: INFLIXIMAB-DYYB
     Dosage: 10 MG/KG
     Route: 042
     Dates: start: 20210304
  7. INFLECTRA [Suspect]
     Active Substance: INFLIXIMAB-DYYB
     Dosage: 10 MG/KG,WEEK 6, THEN EVERY 8 WEEKS
     Route: 042
     Dates: start: 20210325
  8. INFLECTRA [Suspect]
     Active Substance: INFLIXIMAB-DYYB
     Dosage: 700 MG
     Route: 042
     Dates: start: 20210520
  9. INFLECTRA [Suspect]
     Active Substance: INFLIXIMAB-DYYB
     Dosage: 700 MG
     Route: 042
     Dates: start: 20210520
  10. INFLECTRA [Suspect]
     Active Substance: INFLIXIMAB-DYYB
     Dosage: 10 MG/KG EVERY 4 WEEKS
     Route: 042
     Dates: start: 20210618, end: 20211006
  11. INFLECTRA [Suspect]
     Active Substance: INFLIXIMAB-DYYB
     Dosage: 10 MG/KG EVERY 4 WEEKS
     Route: 042
     Dates: start: 20210713
  12. INFLECTRA [Suspect]
     Active Substance: INFLIXIMAB-DYYB
     Dosage: 10 MG/KG EVERY 4 WEEKS
     Route: 042
     Dates: start: 20210813
  13. INFLECTRA [Suspect]
     Active Substance: INFLIXIMAB-DYYB
     Dosage: 10 MG/KG EVERY 4 WEEKS
     Route: 042
     Dates: start: 20210909
  14. INFLECTRA [Suspect]
     Active Substance: INFLIXIMAB-DYYB
     Dosage: 10 MG/KG EVERY 8 WEEKS
     Route: 042
     Dates: start: 20211202
  15. INFLECTRA [Suspect]
     Active Substance: INFLIXIMAB-DYYB
     Dosage: 10 MG/KG EVERY 8 WEEKS
     Route: 042
     Dates: start: 20220127
  16. INFLECTRA [Suspect]
     Active Substance: INFLIXIMAB-DYYB
     Dosage: 10 MG/KG EVERY 8 WEEKS
     Route: 042
     Dates: start: 20220324
  17. INFLECTRA [Suspect]
     Active Substance: INFLIXIMAB-DYYB
     Dosage: 10 MG/KG EVERY 8 WEEKS
     Route: 042
     Dates: start: 20220519
  18. INFLECTRA [Suspect]
     Active Substance: INFLIXIMAB-DYYB
     Dosage: 740 MG SUPPOSED TO RECEIVE 10 MG/KG EVERY 8 WEEKS
     Route: 042
     Dates: start: 20221228
  19. INFLECTRA [Suspect]
     Active Substance: INFLIXIMAB-DYYB
     Dosage: 740 MG SUPPOSED TO RECEIVE 10 MG/KG EVERY 8 WEEKS
     Route: 042
     Dates: start: 20221228
  20. CALCIUM [Concomitant]
     Active Substance: CALCIUM
     Dosage: 1 DF, DOSAGE NOT AVAILABLE
     Route: 065
  21. CIPROFLOXACIN [Concomitant]
     Active Substance: CIPROFLOXACIN
     Dosage: 1 DF,DOSAGE NOT AVAILABLE
     Route: 065
  22. METRONIDAZOLE [Concomitant]
     Active Substance: METRONIDAZOLE
     Dosage: 1 DF, DOSAGE NOT AVAILABLE
     Route: 065
  23. PANTOPRAZOLE [Concomitant]
     Active Substance: PANTOPRAZOLE
     Dosage: 1 DF, DOSAGE NOT AVAILABLE
     Route: 065
  24. PREDNISONE [Concomitant]
     Active Substance: PREDNISONE
     Dosage: 1 DF,DOSAGE NOT AVAILABLE
     Route: 065
  25. CITALOPRAM [Concomitant]
     Active Substance: CITALOPRAM HYDROBROMIDE
     Dosage: 15 MG
     Route: 048

REACTIONS (15)
  - Weight increased [Not Recovered/Not Resolved]
  - Off label use [Unknown]
  - Incorrect dose administered [Unknown]
  - Off label use [Unknown]
  - Intentional product use issue [Unknown]
  - Overdose [Unknown]
  - Hordeolum [Recovered/Resolved]
  - Erythema of eyelid [Unknown]
  - Eyelid oedema [Unknown]
  - Alopecia [Not Recovered/Not Resolved]
  - Fatigue [Not Recovered/Not Resolved]
  - Impaired work ability [Not Recovered/Not Resolved]
  - Condition aggravated [Not Recovered/Not Resolved]
  - Heart rate decreased [Not Recovered/Not Resolved]
  - Blood pressure increased [Recovered/Resolved]

NARRATIVE: CASE EVENT DATE: 20210101
